FAERS Safety Report 8268891-4 (Version None)
Quarter: 2012Q2

REPORT INFORMATION
  Report Type: 
  Country: None (occurrence: None)
  Receive Date: 20120409
  Receipt Date: 20120403
  Transmission Date: 20120825
  Serious: Yes (Disabling)
  Sender: FDA-Public Use
  Company Number: US-PFIZER INC-2012084501

PATIENT
  Age: 58 Year
  Sex: Male
  Weight: 68.027 kg

DRUGS (3)
  1. LIPITOR [Suspect]
     Dosage: 40 MG, UNK
  2. ACETYLSALICYLIC ACID [Concomitant]
     Dosage: DAILY
  3. LIPITOR [Suspect]
     Indication: BLOOD CHOLESTEROL ABNORMAL
     Dosage: 20 MG, UNK
     Dates: start: 20060101

REACTIONS (3)
  - BACK DISORDER [None]
  - ARTHROPATHY [None]
  - GAIT DISTURBANCE [None]
